FAERS Safety Report 14694569 (Version 1)
Quarter: 2018Q1

REPORT INFORMATION
  Report Type: Spontaneous
  Country: US (occurrence: US)
  Receive Date: 20180328
  Receipt Date: 20180328
  Transmission Date: 20180509
  Serious: Yes (Life-Threatening, Hospitalization, Disabling, Other)
  Sender: FDA-Public Use
  Company Number: None

PATIENT
  Age: 47 Year
  Sex: Female
  Weight: 89.2 kg

DRUGS (1)
  1. KETAMINE [Suspect]
     Active Substance: KETAMINE
     Indication: LUMBAR PUNCTURE
     Dosage: ?          OTHER FREQUENCY:ONCE;?
     Route: 040
     Dates: start: 20180319, end: 20180319

REACTIONS (4)
  - Anaphylactic reaction [None]
  - Pharyngeal oedema [None]
  - Endotracheal intubation complication [None]
  - Grimacing [None]

NARRATIVE: CASE EVENT DATE: 20180319
